FAERS Safety Report 5676950-5 (Version None)
Quarter: 2008Q1

REPORT INFORMATION
  Report Type: 
  Country: None (occurrence: None)
  Receive Date: 20080324
  Receipt Date: 20080311
  Transmission Date: 20080703
  Serious: Yes (Other)
  Sender: FDA-Public Use
  Company Number: US-ROCHE-521969

PATIENT
  Sex: Male
  Weight: 65.8 kg

DRUGS (13)
  1. ACCUTANE [Suspect]
     Indication: ACNE
     Route: 048
     Dates: start: 19900613, end: 19900710
  2. ACCUTANE [Suspect]
     Route: 048
     Dates: start: 19910311, end: 19910711
  3. ACCUTANE [Suspect]
     Route: 048
     Dates: start: 19921107, end: 19930211
  4. PREDNISONE TAB [Suspect]
     Dosage: 40MG OD X 2 WEEKS THEN DECREASE BY 10MG Q WEEK UNTIL OFF
     Route: 048
     Dates: start: 19940929, end: 19941001
  5. PREDNISONE TAB [Suspect]
     Route: 048
     Dates: start: 19941223, end: 19950228
  6. PREDNISONE TAB [Suspect]
     Dosage: REPORTED AS PREDNISONE 60MG X 2 WEEKS, THEN 40MG THEN TAPER
     Route: 048
     Dates: start: 19951025
  7. PREDNISONE TAB [Suspect]
     Dosage: REPORTED AS PREDNISONE 20MG PO QD
     Route: 048
     Dates: start: 19951220, end: 19960121
  8. PREDNISONE TAB [Suspect]
     Dosage: REPORTED AS PREDNISONE 40MG PO QD WITH TAPER
     Route: 048
     Dates: start: 19960122, end: 19960201
  9. PREDNISONE TAB [Suspect]
     Dosage: REPORTED AS PREDNISOEN 30MG QD WITH TAPER
     Route: 048
     Dates: start: 19960821, end: 19961018
  10. PREDNISONE TAB [Suspect]
     Dosage: REPORTED AS PREDNISONE 40MG PO QAM X 7-10 DAYS, 30MG X 7 DAYS THEN TAPER
     Route: 048
     Dates: start: 20031110, end: 20031227
  11. PREDNISONE TAB [Suspect]
     Dosage: REPORTED AS PREDNISONE 20MG OD WITH TAPER
     Route: 048
     Dates: start: 20040408
  12. PREDNISONE TAB [Suspect]
     Dosage: REPORTED AS PREDNISONE 30MG X 1 WEEK, 20MG THEN 20MG ALTERNATE WITH 15MG, THEN 15MG ALTERNATE WITH +
     Route: 048
     Dates: start: 20040510, end: 20040816
  13. PREDNISONE TAB [Suspect]
     Dosage: REPORTED AS 5MG QOD
     Route: 048
     Dates: start: 20040817

REACTIONS (8)
  - CLOSTRIDIAL INFECTION [None]
  - COLITIS [None]
  - COLITIS ULCERATIVE [None]
  - INFLAMMATORY BOWEL DISEASE [None]
  - IRRITABLE BOWEL SYNDROME [None]
  - OSTEOPENIA [None]
  - POLYP [None]
  - PROCTITIS ULCERATIVE [None]
